FAERS Safety Report 5778462-7 (Version None)
Quarter: 2008Q2

REPORT INFORMATION
  Report Type: 
  Country: None (occurrence: None)
  Receive Date: 20080618
  Receipt Date: 20080618
  Transmission Date: 20081010
  Serious: No
  Sender: FDA-Public Use
  Company Number: None

PATIENT
  Age: 56 Year
  Sex: Male

DRUGS (1)
  1. TOPIRAMATE [Suspect]
     Indication: PAIN
     Dosage: 100 MG BID PO
     Route: 048
     Dates: start: 20080502, end: 20080602

REACTIONS (9)
  - ABNORMAL DREAMS [None]
  - AMNESIA [None]
  - ANOREXIA [None]
  - APATHY [None]
  - ASTHENIA [None]
  - CRYING [None]
  - DEPRESSION [None]
  - SLEEP DISORDER [None]
  - WEIGHT DECREASED [None]
